FAERS Safety Report 24942946 (Version 1)
Quarter: 2025Q1

REPORT INFORMATION
  Report Type: Spontaneous
  Country: PL (occurrence: PL)
  Receive Date: 20250207
  Receipt Date: 20250207
  Transmission Date: 20250409
  Serious: Yes (Life-Threatening)
  Sender: BAYER HEALTHCARE PHARMACEUTICALS INC.
  Company Number: None

PATIENT
  Age: 40 Year
  Sex: Female
  Weight: 69 kg

DRUGS (1)
  1. ULTRAVIST [Suspect]
     Active Substance: IOPROMIDE
     Indication: Scan with contrast
     Route: 042
     Dates: start: 20210429, end: 20210429

REACTIONS (6)
  - Asthenia [Recovering/Resolving]
  - Pallor [Recovering/Resolving]
  - Erythema [Recovering/Resolving]
  - Peripheral pulse decreased [Recovering/Resolving]
  - Blood pressure immeasurable [Recovering/Resolving]
  - Hypopnoea [Recovering/Resolving]

NARRATIVE: CASE EVENT DATE: 20210429
